FAERS Safety Report 17662203 (Version 2)
Quarter: 2021Q1

REPORT INFORMATION
  Report Type: Report from Study
  Country: US (occurrence: US)
  Receive Date: 20200413
  Receipt Date: 20210322
  Transmission Date: 20210419
  Serious: Yes (Other)
  Sender: FDA-Public Use
  Company Number: NVSC2020US096529

PATIENT
  Age: 76 Year
  Sex: Male
  Weight: 75.8 kg

DRUGS (1)
  1. LAMPRENE [Suspect]
     Active Substance: CLOFAZIMINE
     Indication: MYCOBACTERIUM ABSCESSUS INFECTION
     Dosage: 100 MG, UNKNOWN
     Route: 048
     Dates: start: 20190618, end: 20200128

REACTIONS (3)
  - Blood urea increased [Unknown]
  - Blood creatinine increased [Unknown]
  - Mycobacterium abscessus infection [Unknown]

NARRATIVE: CASE EVENT DATE: 20200110
